FAERS Safety Report 6108239-4 (Version None)
Quarter: 2009Q1

REPORT INFORMATION
  Report Type: 
  Country: None (occurrence: None)
  Receive Date: 20090303
  Receipt Date: 20090225
  Transmission Date: 20090719
  Serious: Yes (Life-Threatening, Hospitalization)
  Sender: FDA-Public Use
  Company Number: 118857

PATIENT
  Age: 43 Year
  Sex: Male

DRUGS (8)
  1. SIMVASTATIN [Suspect]
  2. FLUCONAZOLE [Suspect]
  3. CLPIDROGREL [Concomitant]
  4. GLICLOZIDE [Concomitant]
  5. METFORMIN HCL [Concomitant]
  6. ATENOLOL [Concomitant]
  7. RAMIPRIL [Concomitant]
  8. SIMVASTATIN [Concomitant]

REACTIONS (9)
  - ACUTE HEPATIC FAILURE [None]
  - CULTURE POSITIVE [None]
  - DRUG INTERACTION [None]
  - HAEMOGLOBIN DECREASED [None]
  - LUNG CONSOLIDATION [None]
  - PNEUMOCYSTIS JIROVECI INFECTION [None]
  - RESPIRATORY FAILURE [None]
  - RHABDOMYOLYSIS [None]
  - TUBERCULOSIS [None]
